FAERS Safety Report 7353721-5 (Version None)
Quarter: 2011Q1

REPORT INFORMATION
  Report Type: 
  Country: None (occurrence: None)
  Receive Date: 20110303
  Receipt Date: 20100316
  Transmission Date: 20110831
  Serious: Yes (Other)
  Sender: FDA-Public Use
  Company Number: WAES 1003USA02502

PATIENT
  Age: 80 Year
  Sex: Female

DRUGS (1)
  1. PRINIVIL [Suspect]
     Indication: PRODUCT USED FOR UNKNOWN INDICATION
     Dosage: PO
     Route: 048

REACTIONS (5)
  - SWELLING FACE [None]
  - LIP SWELLING [None]
  - DYSARTHRIA [None]
  - PHARYNGEAL OEDEMA [None]
  - DIARRHOEA [None]
